FAERS Safety Report 4301767-3 (Version None)
Quarter: 2004Q1

REPORT INFORMATION
  Report Type: 
  Country: None (occurrence: None)
  Receive Date: 20040126
  Receipt Date: 20031006
  Transmission Date: 20041129
  Serious: No
  Sender: FDA-Public Use
  Company Number: USA031049120

PATIENT
  Age: 11 Year
  Sex: Male
  Weight: 52 kg

DRUGS (3)
  1. STRATTERA [Suspect]
     Indication: OPPOSITIONAL DEFIANT DISORDER
     Dosage: 40 MG/DAY
     Dates: start: 20031001
  2. WELLBUTRIN [Concomitant]
  3. RISPERDAL [Concomitant]

REACTIONS (1)
  - CHEST PAIN [None]
